FAERS Safety Report 9619351 (Version 1)
Quarter: 2013Q4

REPORT INFORMATION
  Report Type: Report from Study
  Country: None (occurrence: US)
  Receive Date: 20131014
  Receipt Date: 20131014
  Transmission Date: 20140711
  Serious: Yes (Other)
  Sender: FDA-Public Use
  Company Number: US-CUBIST-2010S1000210

PATIENT
  Age: 30 Year
  Sex: Female

DRUGS (9)
  1. BLINDED THERAPY [Suspect]
     Indication: ENDOCARDITIS
  2. LOVENOX [Concomitant]
     Indication: THROMBOSIS PROPHYLAXIS
     Dates: start: 20100408, end: 20100416
  3. FLUCONAZOLE [Concomitant]
     Indication: FUNGAL INFECTION
     Dates: start: 20100408, end: 20100415
  4. LORAZEPAM [Concomitant]
     Indication: ANXIETY
     Dates: start: 20100407
  5. METHADONE [Concomitant]
     Indication: DRUG DEPENDENCE
     Dates: start: 20100407
  6. MOTRIN [Concomitant]
     Indication: PAIN
     Dates: start: 20100412, end: 20100416
  7. NICOTINE [Concomitant]
     Indication: NICOTINE DEPENDENCE
     Dates: start: 20100415
  8. PANTOPRAZOLE [Concomitant]
     Indication: HAEMORRHAGE PROPHYLAXIS
     Dates: start: 20100408
  9. CODEINE [Concomitant]
     Indication: COUGH
     Dates: start: 20100416

REACTIONS (1)
  - Haemoptysis [Recovering/Resolving]
